FAERS Safety Report 11241661 (Version 1)
Quarter: 2015Q3

REPORT INFORMATION
  Report Type: Spontaneous
  Country: FR (occurrence: FR)
  Receive Date: 20150706
  Receipt Date: 20150706
  Transmission Date: 20151125
  Serious: Yes (Other)
  Sender: FDA-Public Use
  Company Number: FR-ELI_LILLY_AND_COMPANY-FR201506009659

PATIENT
  Age: 72 Year
  Sex: Male

DRUGS (10)
  1. PREVISCAN (PENTOXIFYLLINE) [Concomitant]
     Active Substance: PENTOXIFYLLINE
  2. HUMALOG [Suspect]
     Active Substance: INSULIN LISPRO
     Indication: TYPE 1 DIABETES MELLITUS
     Dosage: UNK
     Route: 058
  3. PARIET [Concomitant]
     Active Substance: RABEPRAZOLE SODIUM
  4. MIMPARA [Concomitant]
     Active Substance: CINACALCET HYDROCHLORIDE
  5. INEGY [Concomitant]
     Active Substance: EZETIMIBE\SIMVASTATIN
  6. LASILIX                            /00032601/ [Concomitant]
     Active Substance: FUROSEMIDE
  7. SPECIAFOLDINE [Concomitant]
     Active Substance: FOLIC ACID
  8. LANTUS [Suspect]
     Active Substance: INSULIN GLARGINE
     Indication: TYPE 1 DIABETES MELLITUS
     Dosage: UNK
     Route: 058
  9. XATRAL [Concomitant]
     Active Substance: ALFUZOSIN
  10. CALCIDIA [Concomitant]
     Active Substance: CALCIUM POLYCARBOPHIL

REACTIONS (4)
  - Hypoglycaemic coma [Recovered/Resolved]
  - Hypoglycaemia [Unknown]
  - Hypoglycaemic coma [Unknown]
  - Atrial fibrillation [Unknown]

NARRATIVE: CASE EVENT DATE: 20150518
